FAERS Safety Report 20391332 (Version 1)
Quarter: 2022Q1

REPORT INFORMATION
  Report Type: Spontaneous
  Country: US (occurrence: None)
  Receive Date: 20220127
  Receipt Date: 20220127
  Transmission Date: 20220423
  Serious: Yes (Disabling)
  Sender: FDA-Public Use
  Company Number: None

PATIENT
  Age: 19 Year
  Sex: Male
  Weight: 117 kg

DRUGS (3)
  1. CLONAZEPAM [Suspect]
     Active Substance: CLONAZEPAM
     Indication: Anxiety
     Dosage: OTHER QUANTITY : 1 TABLET(S);?FREQUENCY : TWICE A DAY;?
     Route: 048
     Dates: start: 20200511, end: 20220122
  2. CLONAZEPAM [Suspect]
     Active Substance: CLONAZEPAM
     Indication: Obsessive-compulsive disorder
  3. CLONAZEPAM [Suspect]
     Active Substance: CLONAZEPAM
     Indication: Depression

REACTIONS (4)
  - Breast pain [None]
  - Gynaecomastia [None]
  - Reaction to colouring [None]
  - Body fat disorder [None]

NARRATIVE: CASE EVENT DATE: 20201015
